FAERS Safety Report 17131416 (Version 3)
Quarter: 2020Q2

REPORT INFORMATION
  Report Type: Spontaneous
  Country: JP (occurrence: JP)
  Receive Date: 20191209
  Receipt Date: 20200420
  Transmission Date: 20200713
  Serious: Yes (Hospitalization)
  Sender: FDA-Public Use
  Company Number: NVSJ2019JP004336

PATIENT
  Age: 19 Year
  Sex: Female

DRUGS (1)
  1. ILARIS [Suspect]
     Active Substance: CANAKINUMAB
     Indication: STILL^S DISEASE
     Dosage: UNK
     Route: 058
     Dates: end: 20190905

REACTIONS (8)
  - Lymphadenopathy [Unknown]
  - Epstein-Barr virus infection [Not Recovered/Not Resolved]
  - Pyrexia [Unknown]
  - Malaise [Unknown]
  - Hepatic function abnormal [Unknown]
  - Infectious mononucleosis [Not Recovered/Not Resolved]
  - Pyrexia [Unknown]
  - Complement factor decreased [Unknown]

NARRATIVE: CASE EVENT DATE: 20191110
